FAERS Safety Report 6463959-7 (Version None)
Quarter: 2009Q4

REPORT INFORMATION
  Report Type: 
  Country: None (occurrence: None)
  Receive Date: 20091201
  Receipt Date: 20091124
  Transmission Date: 20100525
  Serious: Yes (Other)
  Sender: FDA-Public Use
  Company Number: US-JNJFOC-20091008241

PATIENT
  Age: 85 Year
  Sex: Female
  Weight: 58.51 kg

DRUGS (8)
  1. MONISTAT 7 COMB PCK TRIPLE ACTION-7-DAY EMPTY DISP APPL+EXT CRM + C/W [Suspect]
     Route: 067
     Dates: start: 20091022, end: 20091023
  2. MONISTAT 7 COMB PCK TRIPLE ACTION-7-DAY EMPTY DISP APPL+EXT CRM + C/W [Suspect]
     Indication: DRUG USE FOR UNKNOWN INDICATION
     Route: 067
     Dates: start: 20091022, end: 20091023
  3. MONISTAT 7 COMB PCK TRIPLE ACTION-7-DAY EMPTY DISP APPL+EXT CRM + C/W [Suspect]
     Route: 061
     Dates: start: 20091022, end: 20091023
  4. MONISTAT 7 COMB PCK TRIPLE ACTION-7-DAY EMPTY DISP APPL+EXT CRM + C/W [Suspect]
     Route: 061
     Dates: start: 20091022, end: 20091023
  5. INSULIN [Concomitant]
     Route: 065
  6. ATENOLOL [Concomitant]
     Route: 065
  7. PREDNISONE TAB [Concomitant]
     Route: 065
  8. FOLIC ACID [Concomitant]
     Route: 065

REACTIONS (5)
  - KIDNEY INFECTION [None]
  - MEDICAL DEVICE COMPLICATION [None]
  - MEDICAL DEVICE DISCOMFORT [None]
  - PRURITUS [None]
  - RASH ERYTHEMATOUS [None]
